FAERS Safety Report 6805660-3 (Version None)
Quarter: 2010Q2

REPORT INFORMATION
  Report Type: 
  Country: None (occurrence: None)
  Receive Date: 20100628
  Receipt Date: 20071227
  Transmission Date: 20101027
  Serious: No
  Sender: FDA-Public Use
  Company Number: US-PFIZER INC-2007087039

PATIENT
  Sex: Female
  Weight: 63.5 kg

DRUGS (9)
  1. SILDENAFIL CITRATE [Suspect]
     Indication: PULMONARY HYPERTENSION
     Route: 048
     Dates: start: 20070801, end: 20070910
  2. SILDENAFIL CITRATE [Suspect]
     Indication: CAROTID ARTERY DISEASE
  3. COUMADIN [Concomitant]
  4. COREG [Concomitant]
  5. COZAAR [Concomitant]
  6. NORVASC [Concomitant]
  7. ALL OTHER THERAPEUTIC PRODUCTS [Concomitant]
     Indication: HYPOTHYROIDISM
  8. POTASSIUM [Concomitant]
     Indication: HYPERTENSION
  9. TYLENOL [Concomitant]
     Indication: ARTHRALGIA

REACTIONS (2)
  - DIARRHOEA [None]
  - VISION BLURRED [None]
